FAERS Safety Report 10707311 (Version 1)
Quarter: 2015Q1

REPORT INFORMATION
  Report Type: Spontaneous
  Country: US (occurrence: None)
  Receive Date: 20150112
  Receipt Date: 20150112
  Transmission Date: 20150721
  Serious: Yes (Hospitalization)
  Sender: FDA-Public Use
  Company Number: None

PATIENT
  Age: 44 Year
  Sex: Female

DRUGS (1)
  1. AFINITOR [Suspect]
     Active Substance: EVEROLIMUS
     Indication: RECTAL CANCER
     Route: 048
     Dates: start: 20140605, end: 20141029

REACTIONS (8)
  - Dehydration [None]
  - Stomatitis [None]
  - Malignant neoplasm progression [None]
  - Hypophagia [None]
  - Intestinal obstruction [None]
  - Drug ineffective [None]
  - Rectal cancer [None]
  - Diarrhoea [None]

NARRATIVE: CASE EVENT DATE: 201408
